FAERS Safety Report 14037464 (Version 1)
Quarter: 2017Q4

REPORT INFORMATION
  Report Type: Spontaneous
  Country: US (occurrence: US)
  Receive Date: 20171003
  Receipt Date: 20171003
  Transmission Date: 20180321
  Serious: Yes (Hospitalization, Other)
  Sender: FDA-Public Use
  Company Number: None

PATIENT
  Age: 28 Year
  Sex: Male

DRUGS (1)
  1. BICILLIN L-A [Suspect]
     Active Substance: PENICILLIN G BENZATHINE
     Indication: SYPHILIS
     Dosage: 1,200,000 MIU-MEGA INTERNATIONAL UNIT(S) (1,000,000S)?
     Dates: start: 20170929, end: 20170929

REACTIONS (4)
  - Loss of consciousness [None]
  - Dyskinesia [None]
  - Electrocardiogram abnormal [None]
  - Heart rate decreased [None]

NARRATIVE: CASE EVENT DATE: 20170929
